FAERS Safety Report 5876484-9 (Version None)
Quarter: 2008Q3

REPORT INFORMATION
  Report Type: 
  Country: None (occurrence: None)
  Receive Date: 20080910
  Receipt Date: 20080910
  Transmission Date: 20090109
  Serious: Yes (Other)
  Sender: FDA-Public Use
  Company Number: A0746128A

PATIENT
  Age: 71 Year
  Sex: Female

DRUGS (6)
  1. VENTOLIN [Suspect]
     Indication: ASTHMA
     Route: 055
  2. AZMACORT [Concomitant]
  3. PULMICORT-100 [Concomitant]
  4. SINGULAIR [Concomitant]
  5. NASACORT [Concomitant]
  6. ASTELIN [Concomitant]

REACTIONS (3)
  - ASTHMA [None]
  - EXPIRED DRUG ADMINISTERED [None]
  - PAINFUL RESPIRATION [None]
